FAERS Safety Report 11335032 (Version 4)
Quarter: 2015Q4

REPORT INFORMATION
  Report Type: Spontaneous
  Country: US (occurrence: US)
  Receive Date: 20150804
  Receipt Date: 20151210
  Transmission Date: 20160304
  Serious: Yes (Hospitalization)
  Sender: FDA-Public Use
  Company Number: US-PFIZER INC-2015243037

PATIENT
  Age: 75 Year
  Sex: Female
  Weight: 59 kg

DRUGS (13)
  1. VFEND [Suspect]
     Active Substance: VORICONAZOLE
     Indication: ASPERGILLUS INFECTION
     Dosage: 200 MG, 1X/DAY
     Route: 048
     Dates: start: 20150713, end: 20150713
  2. ASPIRIN. [Concomitant]
     Active Substance: ASPIRIN
     Indication: ANTICOAGULANT THERAPY
     Dosage: 325 MG, UNK (1 FULL STRENGTH TABLET)
     Route: 048
  3. ALBUTEROL HFA [Concomitant]
     Active Substance: ALBUTEROL SULFATE
  4. VITAMIN D3 [Concomitant]
     Active Substance: CHOLECALCIFEROL
     Indication: VITAMIN D DEFICIENCY
     Dosage: 5000 IU, 1X/DAY
  5. ITRACONAZOLE. [Suspect]
     Active Substance: ITRACONAZOLE
     Dosage: UNK, (1X DAY AFTER ASPERGILLOSIS AND TAKEN OFF VFEND)
  6. CLONAZEPAM. [Concomitant]
     Active Substance: CLONAZEPAM
     Indication: BREATHING-RELATED SLEEP DISORDER
  7. TRAZODONE HYDROCHLORIDE. [Concomitant]
     Active Substance: TRAZODONE HYDROCHLORIDE
     Indication: SLEEP DISORDER
     Dosage: UNK, 1X/DAY,(ONE AT NIGHT FOR SLEEP)
  8. VFEND [Suspect]
     Active Substance: VORICONAZOLE
     Indication: CHRONIC OBSTRUCTIVE PULMONARY DISEASE
     Dosage: 200 MG, 1X/DAY
     Route: 048
     Dates: end: 20150815
  9. ITRACONAZOLE. [Suspect]
     Active Substance: ITRACONAZOLE
     Indication: ASPERGILLUS INFECTION
     Dosage: 100 MG, 2X/DAY (TWO CAPSULES BY MOUTH TWICE A DAY)
     Route: 048
     Dates: start: 20150818, end: 20150826
  10. CLONAZEPAM. [Concomitant]
     Active Substance: CLONAZEPAM
     Indication: ANXIETY
     Dosage: 1 MG, 1X/DAY(AT NIGHT)
     Route: 048
  11. FLECAINIDE [Concomitant]
     Active Substance: FLECAINIDE
     Indication: ATRIAL FIBRILLATION
     Dosage: 100 MG, 1X/DAY (AT NIGHT)
     Route: 048
  12. VFEND [Suspect]
     Active Substance: VORICONAZOLE
     Indication: FUNGAL INFECTION
     Dosage: 200 MG, 2X/DAY, [12 HOURS APART]
     Route: 048
     Dates: start: 20150714
  13. VFEND [Suspect]
     Active Substance: VORICONAZOLE
     Indication: ASPERGILLUS INFECTION
     Dosage: UNK, (AT 1ST 2X DAY, THEN REDUCED TO ONE)
     Dates: start: 20150713

REACTIONS (15)
  - Visual impairment [Not Recovered/Not Resolved]
  - Blister [Not Recovered/Not Resolved]
  - Vision blurred [Not Recovered/Not Resolved]
  - Photosensitivity reaction [Not Recovered/Not Resolved]
  - Muscle spasms [Recovering/Resolving]
  - Urinary tract infection [Recovered/Resolved]
  - Diplopia [Not Recovered/Not Resolved]
  - Restlessness [Recovering/Resolving]
  - Inflammation [Unknown]
  - Drug hypersensitivity [Not Recovered/Not Resolved]
  - Disorientation [Recovered/Resolved]
  - Joint swelling [Unknown]
  - Disturbance in attention [Not Recovered/Not Resolved]
  - Balance disorder [Not Recovered/Not Resolved]
  - Asthenia [Unknown]

NARRATIVE: CASE EVENT DATE: 201507
